FAERS Safety Report 5138722-X (Version None)
Quarter: 2006Q4

REPORT INFORMATION
  Report Type: 
  Country: None (occurrence: None)
  Receive Date: 20061030
  Receipt Date: 20060810
  Transmission Date: 20070319
  Serious: Yes (Hospitalization)
  Sender: FDA-Public Use
  Company Number: US-MERCK-0608USA02900

PATIENT
  Age: 16 Month
  Sex: Male
  Weight: 10 kg

DRUGS (2)
  1. SINGULAIR [Suspect]
     Indication: ASTHMA
     Route: 048
     Dates: start: 20060719
  2. PREDNISONE TAB [Concomitant]
     Indication: BRONCHIAL HYPERREACTIVITY
     Route: 048

REACTIONS (5)
  - DYSSTASIA [None]
  - ERYTHEMA MULTIFORME [None]
  - GAIT DISTURBANCE [None]
  - TACHYCARDIA [None]
  - URTICARIA [None]
